FAERS Safety Report 7517489-1 (Version None)
Quarter: 2011Q2

REPORT INFORMATION
  Report Type: 
  Country: None (occurrence: None)
  Receive Date: 20110601
  Receipt Date: 20110525
  Transmission Date: 20111010
  Serious: Yes (Hospitalization, Other)
  Sender: FDA-Public Use
  Company Number: US-ABBOTT-11P-163-0728946-00

PATIENT
  Age: 31 Year
  Sex: Female
  Weight: 72.64 kg

DRUGS (5)
  1. CYMBALTA [Concomitant]
     Indication: PRODUCT USED FOR UNKNOWN INDICATION
     Dosage: 60MG DAILY AT HOUR OF SLEEP
     Route: 048
  2. LITHIUM CARBONATE [Concomitant]
     Indication: PRODUCT USED FOR UNKNOWN INDICATION
     Route: 048
  3. TRAZODONE HCL [Concomitant]
     Indication: PRODUCT USED FOR UNKNOWN INDICATION
     Dosage: 50MG DAILY AT HOUR OF SLEEP
     Route: 048
  4. LOESTRIN 1.5/30 [Concomitant]
     Indication: CONTRACEPTION
  5. LUPRON DEPOT [Suspect]
     Indication: ENDOMETRIOSIS
     Dosage: 1 IN 1 MONTH: 2 INJECTIONS TOTAL
     Route: 058
     Dates: start: 20110406, end: 20110503

REACTIONS (7)
  - VOMITING [None]
  - PELVIC PAIN [None]
  - NAUSEA [None]
  - TRANSIENT ISCHAEMIC ATTACK [None]
  - ADNEXA UTERI PAIN [None]
  - DEHYDRATION [None]
  - UTERINE PAIN [None]
